FAERS Safety Report 18307587 (Version 3)
Quarter: 2021Q3

REPORT INFORMATION
  Report Type: Spontaneous
  Country: US (occurrence: US)
  Receive Date: 20200924
  Receipt Date: 20210927
  Transmission Date: 20211014
  Serious: Yes (Other)
  Sender: FDA-Public Use
  Company Number: US-SA-2020SA258358

PATIENT

DRUGS (1)
  1. ZANTAC [Suspect]
     Active Substance: RANITIDINE HYDROCHLORIDE
     Dosage: UNK
     Route: 048
     Dates: start: 2014, end: 2019

REACTIONS (3)
  - Renal cancer [Unknown]
  - Injury [Unknown]
  - Anxiety [Unknown]

NARRATIVE: CASE EVENT DATE: 2019
